FAERS Safety Report 12266557 (Version 1)
Quarter: 2016Q2

REPORT INFORMATION
  Report Type: Spontaneous
  Country: US (occurrence: US)
  Receive Date: 20160414
  Receipt Date: 20160414
  Transmission Date: 20160815
  Serious: No
  Sender: FDA-Public Use
  Company Number: US-BRISTOL-MYERS SQUIBB COMPANY-BMS-2016-027966

PATIENT
  Age: 18 Year
  Sex: Male

DRUGS (2)
  1. ABILIFY [Suspect]
     Active Substance: ARIPIPRAZOLE
     Indication: SCHIZOPHRENIFORM DISORDER
     Dosage: 10 MG, QD
     Route: 048
     Dates: start: 2015
  2. ABILIFY [Suspect]
     Active Substance: ARIPIPRAZOLE
     Indication: POST-TRAUMATIC STRESS DISORDER

REACTIONS (3)
  - Wrong technique in product usage process [Unknown]
  - Off label use [Unknown]
  - Discomfort [Recovered/Resolved]
